FAERS Safety Report 7247600-1 (Version None)
Quarter: 2011Q1

REPORT INFORMATION
  Report Type: 
  Country: None (occurrence: None)
  Receive Date: 20110127
  Receipt Date: 20110125
  Transmission Date: 20110831
  Serious: Yes (Hospitalization)
  Sender: FDA-Public Use
  Company Number: DK-ROCHE-755531

PATIENT
  Age: 30 Year
  Sex: Female

DRUGS (3)
  1. METHOTREXATE [Concomitant]
     Dosage: FREQUENCY:QWK
  2. ROACTEMRA [Suspect]
     Route: 065
  3. PREDNISOLONE [Concomitant]
     Dosage: DOSE:5-7.5 MG

REACTIONS (1)
  - ABDOMINAL ABSCESS [None]
